FAERS Safety Report 12267780 (Version 1)
Quarter: 2016Q2

REPORT INFORMATION
  Report Type: Report from Study
  Country: FR (occurrence: FR)
  Receive Date: 20160414
  Receipt Date: 20160414
  Transmission Date: 20160815
  Serious: Yes (Other)
  Sender: FDA-Public Use
  Company Number: FR-MYLANLABS-2016M1015281

PATIENT

DRUGS (2)
  1. LITHIUM. [Interacting]
     Active Substance: LITHIUM
     Indication: CLUSTER HEADACHE
     Route: 065
  2. VERAPAMIL [Suspect]
     Active Substance: VERAPAMIL HYDROCHLORIDE
     Indication: CLUSTER HEADACHE
     Dosage: 360 MG DAILY
     Route: 065

REACTIONS (3)
  - Toxicity to various agents [Unknown]
  - Drug interaction [Unknown]
  - Sinus node dysfunction [Unknown]
